FAERS Safety Report 9279993 (Version 1)
Quarter: 2013Q2

REPORT INFORMATION
  Report Type: Spontaneous
  Country: US (occurrence: None)
  Receive Date: 20130506
  Receipt Date: 20130506
  Transmission Date: 20140414
  Serious: Yes (Hospitalization)
  Sender: FDA-Public Use
  Company Number: None

PATIENT
  Age: 76 Year
  Sex: Female

DRUGS (2)
  1. VANCOMYCIN [Suspect]
     Dosage: 750 MG  IV DAILY
     Route: 042
     Dates: start: 20121003, end: 20121016
  2. LEVAQUIN [Suspect]
     Dosage: 750 MG
     Dates: start: 20121003, end: 20121016

REACTIONS (1)
  - Metabolic encephalopathy [None]
